FAERS Safety Report 4704433-5 (Version None)
Quarter: 2005Q2

REPORT INFORMATION
  Report Type: 
  Country: None (occurrence: None)
  Receive Date: 20050630
  Receipt Date: 20050407
  Transmission Date: 20051028
  Serious: Yes (Hospitalization)
  Sender: FDA-Public Use
  Company Number: FR-AMGEN-UK125345

PATIENT
  Age: 52 Year
  Sex: Male
  Weight: 80 kg

DRUGS (4)
  1. NEULASTA [Suspect]
     Indication: CHEMOTHERAPY
     Route: 065
     Dates: start: 20050205, end: 20050205
  2. CISPLATIN [Concomitant]
     Route: 065
  3. FLUOROURACIL [Concomitant]
     Route: 065
  4. CALCIUM FOLINATE [Concomitant]
     Route: 065

REACTIONS (5)
  - AGRANULOCYTOSIS [None]
  - DRUG INEFFECTIVE [None]
  - MUCOSAL INFLAMMATION [None]
  - NEUTROPENIA [None]
  - PYREXIA [None]
